FAERS Safety Report 7020413-1 (Version None)
Quarter: 2010Q3

REPORT INFORMATION
  Report Type: 
  Country: None (occurrence: None)
  Receive Date: 20100929
  Receipt Date: 20100923
  Transmission Date: 20110219
  Serious: Yes (Death, Hospitalization)
  Sender: FDA-Public Use
  Company Number: US-WYE-H17761710

PATIENT
  Sex: Female
  Weight: 84.8 kg

DRUGS (1)
  1. TEMSIROLIMUS [Suspect]
     Indication: HODGKIN'S DISEASE
     Route: 042
     Dates: start: 20091014, end: 20100913

REACTIONS (3)
  - ANAEMIA [None]
  - DEATH [None]
  - DYSPNOEA [None]
